FAERS Safety Report 7709855-6 (Version None)
Quarter: 2011Q3

REPORT INFORMATION
  Report Type: 
  Country: None (occurrence: None)
  Receive Date: 20110825
  Receipt Date: 20110822
  Transmission Date: 20111222
  Serious: Yes (Life-Threatening)
  Sender: FDA-Public Use
  Company Number: GB-MERCK-1108GBR00108

PATIENT
  Age: 80 Year
  Sex: Female
  Weight: 66 kg

DRUGS (16)
  1. CLOBETASOL PROPIONATE [Concomitant]
     Route: 065
     Dates: start: 20110615, end: 20110713
  2. LOSARTAN POTASSIUM [Concomitant]
     Route: 048
     Dates: start: 20110418
  3. JANUVIA [Suspect]
     Route: 048
     Dates: start: 20110718
  4. ACETAMINOPHEN [Concomitant]
     Route: 065
     Dates: start: 20110426
  5. HYDROCORTISONE AND NYSTATIN [Concomitant]
     Route: 065
     Dates: start: 20110615
  6. GLICLAZIDE [Concomitant]
     Route: 065
     Dates: start: 20110418
  7. TRIMETHOPRIM [Concomitant]
     Route: 065
     Dates: start: 20110719, end: 20110724
  8. LANSOPRAZOLE [Concomitant]
     Route: 065
     Dates: start: 20110418
  9. SIMVASTATIN [Concomitant]
     Route: 048
     Dates: start: 20110418
  10. CORN OIL AND CHOLECALCIFEROL AND DIMETHICONE AND GLYCERIN AND OAT AND [Concomitant]
     Route: 065
  11. AMITRIPTYLINE HYDROCHLORIDE [Concomitant]
     Route: 065
     Dates: start: 20110418
  12. ASPIRIN [Concomitant]
     Route: 065
     Dates: start: 20110418
  13. CALCIUM CARBONATE AND CHOLECALCIFEROL [Concomitant]
     Route: 065
     Dates: start: 20110418
  14. HYDROXYZINE [Concomitant]
     Route: 065
     Dates: start: 20110418
  15. METFORMIN [Concomitant]
     Route: 065
     Dates: start: 20110418
  16. PREDNISOLONE [Concomitant]
     Route: 065
     Dates: start: 20110517

REACTIONS (2)
  - CEREBROVASCULAR ACCIDENT [None]
  - HEMIPARESIS [None]
